FAERS Safety Report 4431215-4 (Version None)
Quarter: 2004Q3

REPORT INFORMATION
  Report Type: 
  Country: None (occurrence: None)
  Receive Date: 20040823
  Receipt Date: 20040823
  Transmission Date: 20050211
  Serious: Yes (Life-Threatening, Hospitalization)
  Sender: FDA-Public Use
  Company Number: None

PATIENT
  Age: 47 Year
  Sex: Male
  Weight: 86.1834 kg

DRUGS (2)
  1. XANAX [Suspect]
     Indication: GENERALISED ANXIETY DISORDER
     Dosage: 2MG''S EVERY 4 TO ORAL
     Route: 048
     Dates: start: 20030301, end: 20040821
  2. XANAX [Suspect]
     Indication: INSOMNIA
     Dosage: 2MG''S EVERY 4 TO ORAL
     Route: 048
     Dates: start: 20030301, end: 20040821

REACTIONS (3)
  - AGORAPHOBIA [None]
  - DRUG DEPENDENCE [None]
  - SUICIDAL IDEATION [None]
